FAERS Safety Report 12745280 (Version 2)
Quarter: 2017Q2

REPORT INFORMATION
  Report Type: Spontaneous
  Country: US (occurrence: US)
  Receive Date: 20160915
  Receipt Date: 20170425
  Transmission Date: 20170830
  Serious: No
  Sender: FDA-Public Use
  Company Number: US-TEVA-687283ACC

PATIENT
  Age: 18 Year
  Sex: Female
  Weight: 89.44 kg

DRUGS (3)
  1. PARAGARD T 380A [Suspect]
     Active Substance: COPPER
     Indication: CONTRACEPTION
     Dates: start: 20160817, end: 20160817
  2. TRINESSA [Concomitant]
     Active Substance: ETHINYL ESTRADIOL\NORGESTIMATE
  3. FAMVIR [Concomitant]
     Active Substance: FAMCICLOVIR
     Dosage: PRESCRIPTION

REACTIONS (3)
  - Device expulsion [Recovered/Resolved]
  - Chlamydia test positive [Recovered/Resolved]
  - Vaginal haemorrhage [Recovered/Resolved]

NARRATIVE: CASE EVENT DATE: 20160817
